FAERS Safety Report 9324997 (Version 1)
Quarter: 2013Q2

REPORT INFORMATION
  Report Type: Report from Study
  Country: NL (occurrence: NL)
  Receive Date: 20130603
  Receipt Date: 20130603
  Transmission Date: 20140414
  Serious: Yes (Hospitalization, Other)
  Sender: FDA-Public Use
  Company Number: NL-CELGENEUS-114-FK228-13053255

PATIENT
  Age: 49 Year
  Sex: Male

DRUGS (1)
  1. ROMIDEPSIN [Suspect]
     Indication: ANGIOIMMUNOBLASTIC T-CELL LYMPHOMA
     Route: 065

REACTIONS (3)
  - Thrombocytopenia [Recovering/Resolving]
  - Metapneumovirus infection [Unknown]
  - Pneumonia pneumococcal [Recovering/Resolving]
